FAERS Safety Report 25243362 (Version 5)
Quarter: 2025Q3

REPORT INFORMATION
  Report Type: Spontaneous
  Country: US (occurrence: US)
  Receive Date: 20250428
  Receipt Date: 20250829
  Transmission Date: 20251021
  Serious: Yes (Other)
  Sender: SANDOZ
  Company Number: US-SANDOZ-SDZ2025US019882

PATIENT
  Age: 53 Year
  Sex: Male

DRUGS (2)
  1. HYRIMOZ [Suspect]
     Active Substance: ADALIMUMAB-ADAZ
     Indication: Psoriasis
     Dosage: 40 MG, Q2W
     Route: 058
  2. HYRIMOZ [Suspect]
     Active Substance: ADALIMUMAB-ADAZ
     Dosage: 40 MG, Q2W
     Route: 058
     Dates: start: 20250110

REACTIONS (10)
  - Neuropathy peripheral [Unknown]
  - Deafness [Unknown]
  - Hypoacusis [Not Recovered/Not Resolved]
  - Hyperthermia [Recovered/Resolved]
  - Asthenia [Unknown]
  - Weight decreased [Unknown]
  - Anxiety [Unknown]
  - Malaise [Recovered/Resolved]
  - Product dose omission issue [Unknown]
  - Product use issue [Unknown]

NARRATIVE: CASE EVENT DATE: 20250424
